FAERS Safety Report 12763471 (Version 2)
Quarter: 2016Q3

REPORT INFORMATION
  Report Type: Spontaneous
  Country: US (occurrence: US)
  Receive Date: 20160920
  Receipt Date: 20160920
  Transmission Date: 20161109
  Serious: No
  Sender: FDA-Public Use
  Company Number: US-BRISTOL-MYERS SQUIBB COMPANY-BMS-2016-075619

PATIENT
  Sex: Female

DRUGS (1)
  1. ABILIFY [Suspect]
     Active Substance: ARIPIPRAZOLE
     Indication: MAJOR DEPRESSION
     Dosage: 2 MG, BID
     Route: 065

REACTIONS (5)
  - Confusional state [Unknown]
  - Emotional distress [Unknown]
  - Stress [Unknown]
  - Off label use [Unknown]
  - Feeling abnormal [Unknown]
